FAERS Safety Report 5106478-2 (Version None)
Quarter: 2006Q3

REPORT INFORMATION
  Report Type: 
  Country: None (occurrence: None)
  Receive Date: 20060918
  Receipt Date: 20060907
  Transmission Date: 20061208
  Serious: Yes (Hospitalization)
  Sender: FDA-Public Use
  Company Number: US-ROCHE-462590

PATIENT
  Age: 50 Year
  Sex: Male

DRUGS (2)
  1. PEGASYS [Suspect]
     Indication: HEPATITIS C
     Route: 058
     Dates: start: 20051213, end: 20060605
  2. RIBAVIRIN [Suspect]
     Indication: HEPATITIS C
     Route: 048
     Dates: start: 20051213, end: 20060605

REACTIONS (18)
  - ABDOMINAL DISTENSION [None]
  - BLOOD POTASSIUM DECREASED [None]
  - BREAST MASS [None]
  - CHEST PAIN [None]
  - CONTUSION [None]
  - DEPRESSION [None]
  - DIARRHOEA [None]
  - DYSPNOEA [None]
  - GASTRIC POLYPS [None]
  - GASTRIC ULCER [None]
  - GASTRITIS [None]
  - RED BLOOD CELL COUNT DECREASED [None]
  - SENSORY DISTURBANCE [None]
  - SLEEP ATTACKS [None]
  - VARICES OESOPHAGEAL [None]
  - VEIN DISORDER [None]
  - VOMITING [None]
  - WEIGHT INCREASED [None]
